FAERS Safety Report 18338858 (Version 3)
Quarter: 2020Q4

REPORT INFORMATION
  Report Type: Report from Study
  Country: None (occurrence: US)
  Receive Date: 20201002
  Receipt Date: 20201111
  Transmission Date: 20210113
  Serious: Yes (Other)
  Sender: FDA-Public Use
  Company Number: US-ABBVIE-20K-163-3585165-00

PATIENT
  Age: 52 Year
  Sex: Male
  Weight: 77.18 kg

DRUGS (4)
  1. LUPRON DEPOT [Suspect]
     Active Substance: LEUPROLIDE ACETATE
     Route: 030
     Dates: start: 20200925
  2. XGEVA [Concomitant]
     Active Substance: DENOSUMAB
     Indication: BONE DISORDER
  3. LUPRON DEPOT [Suspect]
     Active Substance: LEUPROLIDE ACETATE
     Indication: PROSTATE CANCER
     Route: 030
     Dates: start: 20180928, end: 202009
  4. ELIGARD [Concomitant]
     Active Substance: LEUPROLIDE ACETATE
     Indication: PRODUCT USED FOR UNKNOWN INDICATION

REACTIONS (26)
  - Prostate cancer metastatic [Unknown]
  - Sexual dysfunction [Not Recovered/Not Resolved]
  - COVID-19 [Recovered/Resolved]
  - Dyspnoea exertional [Unknown]
  - Injection site pain [Not Recovered/Not Resolved]
  - Spinal disorder [Unknown]
  - Weight decreased [Unknown]
  - Bone pain [Recovered/Resolved]
  - Muscular weakness [Not Recovered/Not Resolved]
  - Musculoskeletal stiffness [Not Recovered/Not Resolved]
  - Prostate cancer metastatic [Not Recovered/Not Resolved]
  - Weight abnormal [Unknown]
  - Prostatic specific antigen decreased [Unknown]
  - Joint neoplasm [Unknown]
  - Anosmia [Unknown]
  - Hot flush [Not Recovered/Not Resolved]
  - Alopecia [Recovering/Resolving]
  - COVID-19 [Recovered/Resolved]
  - Taste disorder [Unknown]
  - Alopecia [Unknown]
  - Injection site pain [Recovered/Resolved]
  - Prostatic specific antigen increased [Not Recovered/Not Resolved]
  - Urinary tract obstruction [Unknown]
  - Ageusia [Unknown]
  - Myalgia [Recovered/Resolved]
  - Gait inability [Unknown]

NARRATIVE: CASE EVENT DATE: 201809
